FAERS Safety Report 6464829-0 (Version None)
Quarter: 2009Q4

REPORT INFORMATION
  Report Type: 
  Country: None (occurrence: None)
  Receive Date: 20091201
  Receipt Date: 20090303
  Transmission Date: 20100525
  Serious: No
  Sender: FDA-Public Use
  Company Number: US-AMGEN-COG336548

PATIENT
  Sex: Female

DRUGS (2)
  1. ENBREL [Suspect]
     Indication: RHEUMATOID ARTHRITIS
     Route: 058
     Dates: start: 20081224
  2. LEFLUNOMIDE [Concomitant]
     Route: 048

REACTIONS (3)
  - DRUG ERUPTION [None]
  - INJECTION SITE ERYTHEMA [None]
  - SKIN REACTION [None]
